FAERS Safety Report 4757763-5 (Version None)
Quarter: 2005Q3

REPORT INFORMATION
  Report Type: 
  Country: None (occurrence: None)
  Receive Date: 20050830
  Receipt Date: 20050817
  Transmission Date: 20060218
  Serious: Yes (Hospitalization, Other)
  Sender: FDA-Public Use
  Company Number: 2005116302

PATIENT
  Age: 56 Year
  Sex: Female

DRUGS (2)
  1. ATARAX [Suspect]
     Indication: PREMEDICATION
     Dosage: 100 MG, ORAL
     Route: 048
     Dates: start: 20050602, end: 20050602
  2. HEXABRIX [Suspect]
     Indication: ILL-DEFINED DISORDER
     Dosage: INTRAVENOUS
     Route: 042
     Dates: start: 20050602, end: 20050602

REACTIONS (2)
  - DERMATITIS BULLOUS [None]
  - FEELING HOT [None]
